FAERS Safety Report 26079821 (Version 1)
Quarter: 2025Q4

REPORT INFORMATION
  Report Type: Spontaneous
  Country: CN (occurrence: CN)
  Receive Date: 20251123
  Receipt Date: 20251123
  Transmission Date: 20260118
  Serious: Yes (Other)
  Sender: BEIGENE
  Company Number: CN-BEIGENE-BGN-2025-020172

PATIENT
  Age: 67 Year
  Sex: Male
  Weight: 50 kg

DRUGS (6)
  1. TISLELIZUMAB [Suspect]
     Active Substance: TISLELIZUMAB
     Indication: Hepatic cancer
     Dosage: 1 MILLIGRAM
  2. TISLELIZUMAB [Suspect]
     Active Substance: TISLELIZUMAB
     Dosage: 1 MILLIGRAM
     Route: 041
  3. TISLELIZUMAB [Suspect]
     Active Substance: TISLELIZUMAB
     Dosage: 1 MILLIGRAM
     Route: 041
  4. TISLELIZUMAB [Suspect]
     Active Substance: TISLELIZUMAB
     Dosage: 1 MILLIGRAM
  5. DONAFENIB [Concomitant]
     Active Substance: DONAFENIB
     Indication: Hepatic cancer
     Dosage: 100 MILLIGRAM, QD
     Route: 048
     Dates: start: 20251010
  6. DONAFENIB [Concomitant]
     Active Substance: DONAFENIB
     Dosage: 100 MILLIGRAM, QD
     Dates: start: 20251010

REACTIONS (1)
  - Myelosuppression [Not Recovered/Not Resolved]

NARRATIVE: CASE EVENT DATE: 20251013
